FAERS Safety Report 5528327-0 (Version None)
Quarter: 2007Q4

REPORT INFORMATION
  Report Type: 
  Country: None (occurrence: None)
  Receive Date: 20071128
  Receipt Date: 20071116
  Transmission Date: 20080405
  Serious: Yes (Hospitalization, Other)
  Sender: FDA-Public Use
  Company Number: CH-PFIZER INC-2007098699

PATIENT
  Sex: Male

DRUGS (3)
  1. XANAX [Suspect]
     Route: 048
  2. SEROQUEL [Suspect]
     Dates: end: 20060609
  3. TRITTICO [Suspect]
     Route: 048

REACTIONS (2)
  - DRUG EXPOSURE DURING PREGNANCY [None]
  - HYPOGLYCAEMIA NEONATAL [None]
